FAERS Safety Report 25981585 (Version 2)
Quarter: 2025Q4

REPORT INFORMATION
  Report Type: Report from Study
  Country: CA (occurrence: CA)
  Receive Date: 20251030
  Receipt Date: 20251129
  Transmission Date: 20260118
  Serious: Yes (Death, Other)
  Sender: ABBVIE
  Company Number: CA-ABBVIE-6524918

PATIENT
  Sex: Male

DRUGS (1)
  1. LUPRON [Suspect]
     Active Substance: LEUPROLIDE ACETATE
     Indication: Prostate cancer
     Dosage: FORM STRENGTH: 30 MG, DOSE FORM: POWDER AND SOLVENT FOR PROLONGED-RELEASE SUSPENSION FOR INJECTIO...
     Route: 065
     Dates: start: 20240725

REACTIONS (2)
  - Death [Fatal]
  - Hospice care [Unknown]
